FAERS Safety Report 16517101 (Version 2)
Quarter: 2019Q3

REPORT INFORMATION
  Report Type: Spontaneous
  Country: None (occurrence: NG)
  Receive Date: 20190702
  Receipt Date: 20190702
  Transmission Date: 20191004
  Serious: Yes (Other)
  Sender: FDA-Public Use
  Company Number: NG-POPULATION COUNCIL, INC.-2070204

PATIENT
  Age: 27 Year
  Sex: Female

DRUGS (1)
  1. JADELLE [Suspect]
     Active Substance: LEVONORGESTREL
     Indication: CONTRACEPTION
     Route: 059
     Dates: start: 20190613, end: 201906

REACTIONS (2)
  - Facial paralysis [Recovering/Resolving]
  - Headache [None]

NARRATIVE: CASE EVENT DATE: 20190613
